FAERS Safety Report 9637090 (Version 2)
Quarter: 2014Q1

REPORT INFORMATION
  Report Type: Spontaneous
  Country: US (occurrence: US)
  Receive Date: 20131022
  Receipt Date: 20140224
  Transmission Date: 20141002
  Serious: Yes (Death, Hospitalization)
  Sender: FDA-Public Use
  Company Number: US-BRISTOL-MYERS SQUIBB COMPANY-19549617

PATIENT
  Age: 67 Year
  Sex: Female
  Weight: 85.7 kg

DRUGS (11)
  1. BYETTA [Suspect]
     Indication: TYPE 2 DIABETES MELLITUS
     Dosage: 10 MCG/0.04ML
     Route: 058
     Dates: start: 20070731, end: 20120418
  2. OSCAL D [Concomitant]
     Route: 048
  3. DURAGESIC [Concomitant]
     Indication: PAIN
     Dosage: 1PATCH EVERY 3HRS
     Route: 062
  4. FLONASE [Concomitant]
     Route: 045
  5. LEVEMIR [Concomitant]
  6. MULTIVITAMIN [Concomitant]
     Dosage: TABS
     Route: 048
  7. NEURONTIN [Concomitant]
     Dosage: TABS
     Route: 048
  8. NOVOLOG [Concomitant]
     Dosage: 1DF: 3/D
     Route: 058
  9. PROGRAF [Concomitant]
     Route: 048
  10. PROGRAF [Concomitant]
     Dosage: 1DF: 2CAPS
     Route: 048
  11. PROTONIX [Concomitant]

REACTIONS (1)
  - Pancreatic carcinoma [Fatal]
